FAERS Safety Report 11409986 (Version 2)
Quarter: 2015Q4

REPORT INFORMATION
  Report Type: Report from Study
  Country: SI (occurrence: SI)
  Receive Date: 20150824
  Receipt Date: 20151104
  Transmission Date: 20160304
  Serious: Yes (Other)
  Sender: FDA-Public Use
  Company Number: SI-BAYER-2015-401492

PATIENT
  Age: 60 Year
  Sex: Male

DRUGS (5)
  1. CORYOL [Concomitant]
     Active Substance: CARVEDILOL
     Dosage: 12.5 MG, QD
  2. PARACETAMOL W/TRAMADOL [Concomitant]
     Dosage: 1 DF, PRN
     Route: 048
  3. NEXAVAR [Suspect]
     Active Substance: SORAFENIB
     Indication: HEPATOCELLULAR CARCINOMA
     Dosage: 400 MG, BID
     Route: 048
  4. PLAVIX [Concomitant]
     Active Substance: CLOPIDOGREL BISULFATE
     Dosage: 75 MG, QD
  5. SIOFOR [Concomitant]
     Active Substance: METFORMIN HYDROCHLORIDE
     Indication: DIABETES MELLITUS
     Dosage: 1000 MG, BID

REACTIONS (3)
  - Flatulence [None]
  - Abdominal pain [None]
  - Blood glucose fluctuation [None]

NARRATIVE: CASE EVENT DATE: 20150808
